FAERS Safety Report 13577651 (Version 1)
Quarter: 2017Q2

REPORT INFORMATION
  Report Type: Spontaneous
  Country: US (occurrence: US)
  Receive Date: 20170524
  Receipt Date: 20170524
  Transmission Date: 20170830
  Serious: No
  Sender: FDA-Public Use
  Company Number: US-MYLANLABS-2016M1057566

PATIENT
  Age: 74 Year
  Sex: Female
  Weight: 56.69 kg

DRUGS (3)
  1. ESTRADIOL TABLETS, USP [Suspect]
     Active Substance: ESTRADIOL
     Indication: ORAL HERPES
  2. ESTRADIOL TABLETS, USP [Suspect]
     Active Substance: ESTRADIOL
     Indication: HORMONE REPLACEMENT THERAPY
     Dosage: 2 MG, BID, 1 TAB QAM, 1 TAB QPM
     Route: 048
     Dates: start: 20161109
  3. ESTRADIOL TABLETS, USP [Suspect]
     Active Substance: ESTRADIOL
     Indication: APHTHOUS ULCER

REACTIONS (1)
  - Drug ineffective [Not Recovered/Not Resolved]

NARRATIVE: CASE EVENT DATE: 20161109
